FAERS Safety Report 14289796 (Version 2)
Quarter: 2018Q1

REPORT INFORMATION
  Report Type: Spontaneous
  Country: US (occurrence: US)
  Receive Date: 20171215
  Receipt Date: 20180110
  Transmission Date: 20180509
  Serious: Yes (Hospitalization)
  Sender: FDA-Public Use
  Company Number: US-BEH-2017085859

PATIENT
  Sex: Female
  Weight: 58.96 kg

DRUGS (21)
  1. ADVAIR HFA [Concomitant]
     Active Substance: FLUTICASONE PROPIONATE\SALMETEROL XINAFOATE
  2. DOXYCYCLINE. [Concomitant]
     Active Substance: DOXYCYCLINE
  3. HIZENTRA [Suspect]
     Active Substance: HUMAN IMMUNOGLOBULIN G
     Dosage: UNK
     Route: 058
  4. PHENERGAN [Concomitant]
     Active Substance: PROMETHAZINE HYDROCHLORIDE
  5. SINGULAIR [Concomitant]
     Active Substance: MONTELUKAST SODIUM
  6. HIZENTRA [Suspect]
     Active Substance: HUMAN IMMUNOGLOBULIN G
     Indication: BLOOD IMMUNOGLOBULIN G DECREASED
     Dosage: 10 G, QW
     Route: 058
     Dates: start: 20170206
  7. FLUTICASONE. [Concomitant]
     Active Substance: FLUTICASONE
  8. HIZENTRA [Suspect]
     Active Substance: HUMAN IMMUNOGLOBULIN G
     Dosage: UNK
     Route: 058
  9. KEFLEX [Concomitant]
     Active Substance: CEPHALEXIN
  10. MEDROL [Concomitant]
     Active Substance: METHYLPREDNISOLONE
  11. POTASSIUM [Concomitant]
     Active Substance: POTASSIUM
  12. ACTONEL [Concomitant]
     Active Substance: RISEDRONATE SODIUM
  13. VESICARE [Concomitant]
     Active Substance: SOLIFENACIN SUCCINATE
  14. ZITHROMAX [Concomitant]
     Active Substance: AZITHROMYCIN DIHYDRATE
  15. PROMETHAZINE [Concomitant]
     Active Substance: PROMETHAZINE\PROMETHAZINE HYDROCHLORIDE
  16. LEXAPRO [Concomitant]
     Active Substance: ESCITALOPRAM OXALATE
  17. SPIRIVA [Concomitant]
     Active Substance: TIOTROPIUM BROMIDE MONOHYDRATE
  18. AZITHROMYCIN ANHYDROUS. [Concomitant]
     Active Substance: AZITHROMYCIN ANHYDROUS
  19. NEXIUM [Concomitant]
     Active Substance: ESOMEPRAZOLE MAGNESIUM
  20. RIFAMPIN. [Concomitant]
     Active Substance: RIFAMPIN
  21. ETHAMBUTOL [Concomitant]
     Active Substance: ETHAMBUTOL HYDROCHLORIDE

REACTIONS (5)
  - Blood potassium decreased [Unknown]
  - Lung disorder [Unknown]
  - Hypotension [Unknown]
  - Upper respiratory tract infection [Unknown]
  - Blood sodium decreased [Unknown]
